FAERS Safety Report 20035105 (Version 1)
Quarter: 2021Q4

REPORT INFORMATION
  Report Type: Spontaneous
  Country: NL (occurrence: NL)
  Receive Date: 20211104
  Receipt Date: 20211104
  Transmission Date: 20220304
  Serious: Yes (Hospitalization)
  Sender: FDA-Public Use
  Company Number: None

PATIENT
  Sex: Female
  Weight: 55 kg

DRUGS (1)
  1. CIPROFLOXACIN [Suspect]
     Active Substance: CIPROFLOXACIN
     Indication: Cystitis
     Dosage: 3X
     Dates: start: 202006

REACTIONS (3)
  - Abdominal pain [Recovered/Resolved]
  - Psychomotor hyperactivity [Recovered/Resolved]
  - Tendon pain [Recovered/Resolved]
